FAERS Safety Report 4434985-4 (Version None)
Quarter: 2004Q3

REPORT INFORMATION
  Report Type: 
  Country: None (occurrence: None)
  Receive Date: 20040826
  Receipt Date: 20040705
  Transmission Date: 20050211
  Serious: Yes (Disabling)
  Sender: FDA-Public Use
  Company Number: 2004GB01660

PATIENT
  Age: 75 Year
  Sex: Female

DRUGS (8)
  1. CRESTOR [Suspect]
     Indication: BLOOD CHOLESTEROL INCREASED
     Dosage: 20 MG DAILY PO
     Route: 048
     Dates: start: 20040127, end: 20040617
  2. ATORVASTATIN [Suspect]
     Indication: HYPERCHOLESTEROLAEMIA
  3. ASPIRIN [Concomitant]
  4. TELMISARTAN [Concomitant]
  5. AMLODIPINE [Concomitant]
  6. GLICLAZIDE [Concomitant]
  7. CIMETIDINE [Concomitant]
  8. DOXAZOSIN [Concomitant]

REACTIONS (3)
  - BLOOD TRIGLYCERIDES INCREASED [None]
  - HYPERCHOLESTEROLAEMIA [None]
  - THERAPY NON-RESPONDER [None]
